FAERS Safety Report 9321496 (Version 2)
Quarter: 2013Q3

REPORT INFORMATION
  Report Type: Spontaneous
  Country: US (occurrence: US)
  Receive Date: 20130531
  Receipt Date: 20130812
  Transmission Date: 20140515
  Serious: Yes (Hospitalization, Other)
  Sender: FDA-Public Use
  Company Number: US-BRISTOL-MYERS SQUIBB COMPANY-18921403

PATIENT
  Age: 59 Year
  Sex: Male
  Weight: 74.83 kg

DRUGS (4)
  1. ABILIFY TABS 20 MG [Suspect]
     Indication: BIPOLAR I DISORDER
  2. ABILIFY TABS 20 MG [Suspect]
     Indication: ANXIETY
  3. CYMBALTA [Concomitant]
  4. DEPAKOTE [Concomitant]

REACTIONS (3)
  - Road traffic accident [Not Recovered/Not Resolved]
  - Joint injury [Not Recovered/Not Resolved]
  - Weight decreased [Not Recovered/Not Resolved]
